FAERS Safety Report 5205105-3 (Version None)
Quarter: 2007Q1

REPORT INFORMATION
  Report Type: 
  Country: None (occurrence: None)
  Receive Date: 20070110
  Receipt Date: 20061031
  Transmission Date: 20070707
  Serious: Yes (Hospitalization, Other)
  Sender: FDA-Public Use
  Company Number: US-BRISTOL-MYERS SQUIBB COMPANY-13563747

PATIENT
  Sex: Female

DRUGS (3)
  1. ABILIFY [Suspect]
  2. SEROQUEL [Concomitant]
  3. TOPAMAX [Concomitant]

REACTIONS (1)
  - RENAL FAILURE ACUTE [None]
